FAERS Safety Report 5049409-6 (Version None)
Quarter: 2006Q3

REPORT INFORMATION
  Report Type: 
  Country: None (occurrence: None)
  Receive Date: 20060711
  Receipt Date: 20060711
  Transmission Date: 20061208
  Serious: Yes (Hospitalization, Other)
  Sender: FDA-Public Use
  Company Number: None

PATIENT
  Age: 35 Year
  Sex: Male
  Weight: 92.9874 kg

DRUGS (1)
  1. AMOXICILLIN [Suspect]
     Indication: SINUSITIS
     Dosage: 500 MG   3     PO
     Route: 048
     Dates: start: 20060701, end: 20060710

REACTIONS (4)
  - EYE PAIN [None]
  - MALAISE [None]
  - PHARMACEUTICAL PRODUCT COUNTERFEIT [None]
  - POOR QUALITY DRUG ADMINISTERED [None]
